FAERS Safety Report 10080684 (Version 1)
Quarter: 2014Q2

REPORT INFORMATION
  Report Type: Spontaneous
  Country: DE (occurrence: None)
  Receive Date: 20140414
  Receipt Date: 20140414
  Transmission Date: 20141212
  Serious: Yes (Other)
  Sender: FDA-Public Use
  Company Number: NGX_02331_2014

PATIENT
  Age: 35 Year
  Sex: Male
  Weight: 85 kg

DRUGS (1)
  1. QUTENZA [Suspect]
     Indication: PRODUCT USED FOR UNKNOWN INDICATION
     Dosage: 2 DF 1X TOPICAL), (PATCHES, DF] TOPICAL) UNKNOWN UNTIL NOT CONTINUING) 3/27/2014 - 03/27/2014  THERAPY DATES
     Route: 061
     Dates: start: 20140327, end: 20140327

REACTIONS (3)
  - Application site pain [None]
  - Application site vesicles [None]
  - Burns second degree [None]
